FAERS Safety Report 7514114-0 (Version None)
Quarter: 2011Q2

REPORT INFORMATION
  Report Type: 
  Country: None (occurrence: None)
  Receive Date: 20110531
  Receipt Date: 20101110
  Transmission Date: 20111010
  Serious: No
  Sender: FDA-Public Use
  Company Number: US-BAYER-201040945NA

PATIENT
  Age: 82 Year
  Sex: Female

DRUGS (3)
  1. ZOCOR [Concomitant]
  2. AVELOX [Suspect]
     Indication: BRONCHITIS
     Dosage: 400 MG, QD
     Route: 048
  3. ATENOLOL [Concomitant]

REACTIONS (2)
  - HEPATIC ENZYME INCREASED [None]
  - VISION BLURRED [None]
